FAERS Safety Report 19943032 (Version 1)
Quarter: 2021Q4

REPORT INFORMATION
  Report Type: Spontaneous
  Country: US (occurrence: US)
  Receive Date: 20211011
  Receipt Date: 20211011
  Transmission Date: 20220303
  Serious: Yes (Life-Threatening, Hospitalization)
  Sender: FDA-Public Use
  Company Number: None

PATIENT
  Age: 62 Year
  Sex: Male
  Weight: 96.75 kg

DRUGS (7)
  1. BAMLANIVIMAB [Suspect]
     Active Substance: BAMLANIVIMAB
     Indication: COVID-19
     Dosage: ?          OTHER FREQUENCY:ONE TIME ONLY;
     Route: 042
  2. LOSARTAN [Concomitant]
     Active Substance: LOSARTAN
  3. VITAMIN C [Concomitant]
     Active Substance: ASCORBIC ACID
  4. VITAMIN D3 [Concomitant]
     Active Substance: CHOLECALCIFEROL
  5. ZINC [Concomitant]
     Active Substance: ZINC
  6. GLUCOSAMINE [Concomitant]
     Active Substance: GLUCOSAMINE
  7. VITAMINS [Concomitant]
     Active Substance: VITAMINS

REACTIONS (9)
  - Infusion related reaction [None]
  - Malaise [None]
  - Abdominal discomfort [None]
  - Feeling hot [None]
  - Loss of consciousness [None]
  - Dizziness [None]
  - Feeling cold [None]
  - Hyperhidrosis [None]
  - Heart rate decreased [None]

NARRATIVE: CASE EVENT DATE: 20211008
